FAERS Safety Report 19854508 (Version 1)
Quarter: 2021Q3

REPORT INFORMATION
  Report Type: Report from Study
  Country: EG (occurrence: EG)
  Receive Date: 20210920
  Receipt Date: 20210920
  Transmission Date: 20211014
  Serious: Yes (Other)
  Sender: FDA-Public Use
  Company Number: NVSC2021EG207866

PATIENT
  Age: 23 Year
  Sex: Female

DRUGS (12)
  1. GILENYA [Suspect]
     Active Substance: FINGOLIMOD HYDROCHLORIDE
     Indication: MULTIPLE SCLEROSIS
     Dosage: 0.5 MG, QD
     Route: 048
     Dates: start: 20210627, end: 20210813
  2. SELGON [Concomitant]
     Indication: PRODUCT USED FOR UNKNOWN INDICATION
     Dosage: 20 MG, QD
     Route: 065
  3. SOLUPRED [Concomitant]
     Indication: PRODUCT USED FOR UNKNOWN INDICATION
     Dosage: 6 DF, QD (FOR THREE DAYS)
     Route: 065
  4. SOLUPRED [Concomitant]
     Dosage: 1 DF, (FOR THREE DAYS)
     Route: 065
  5. QUIBRAN [Concomitant]
     Indication: PRODUCT USED FOR UNKNOWN INDICATION
     Dosage: 1/3 TABLET BID
     Route: 065
  6. SOLUPRED [Concomitant]
     Dosage: 4 DF, (FOR THREE DAYS)
     Route: 065
  7. SOLUPRED [Concomitant]
     Dosage: 3 DF, (FOR THREE DAYS)
     Route: 065
  8. MUCOPHYLLINE [Concomitant]
     Indication: PRODUCT USED FOR UNKNOWN INDICATION
     Dosage: ONE TABLESPOONFUL, TID
     Route: 065
  9. SOLUPRED [Concomitant]
     Dosage: 5 DF, (FOR THREE DAYS)
     Route: 065
  10. MUCO [Concomitant]
     Indication: PRODUCT USED FOR UNKNOWN INDICATION
     Dosage: 1 DF, BID
     Route: 065
  11. SOLUPRED [Concomitant]
     Dosage: 2 DF, (FOR THREE DAYS)
     Route: 065
  12. QUIBRAN [Concomitant]
     Dosage: 0.5 DF, QD (AT NIGHT)
     Route: 065

REACTIONS (7)
  - Loss of consciousness [Recovered/Resolved]
  - Bronchitis [Recovering/Resolving]
  - Anosmia [Recovering/Resolving]
  - Ageusia [Recovering/Resolving]
  - Productive cough [Recovering/Resolving]
  - Tonsillitis [Recovered/Resolved]
  - Body temperature fluctuation [Recovered/Resolved]

NARRATIVE: CASE EVENT DATE: 20210812
